FAERS Safety Report 7013089-0 (Version None)
Quarter: 2010Q3

REPORT INFORMATION
  Report Type: 
  Country: None (occurrence: None)
  Receive Date: 20100924
  Receipt Date: 20090218
  Transmission Date: 20110219
  Serious: Yes (Hospitalization)
  Sender: FDA-Public Use
  Company Number: ES-PFIZER INC-2009173019

PATIENT
  Age: 52 Year
  Sex: Female

DRUGS (6)
  1. AXITINIB [Suspect]
     Indication: COLORECTAL CANCER
     Dosage: 5 MG, 2X/DAY
     Route: 048
     Dates: start: 20080909
  2. IRINOTECAN HCL [Suspect]
     Indication: COLORECTAL CANCER
     Dosage: CYCLIC, EVERY 2 WEEKS;
     Route: 042
     Dates: start: 20080909
  3. FLUOROURACIL [Suspect]
     Indication: COLORECTAL CANCER
     Dosage: CYCLIC, EVERY 2 WEEKS;
     Route: 042
     Dates: start: 20080909
  4. FLUOROURACIL [Suspect]
     Dosage: 600 MG, UNK
     Route: 040
     Dates: start: 20080909
  5. *CALCIUM FOLINATE [Suspect]
     Indication: COLORECTAL CANCER
     Dosage: CYCLIC, EVERY 2 WEEKS;
     Route: 042
     Dates: start: 20080909
  6. PANTOPRAZOLE [Concomitant]
     Indication: PROPHYLAXIS
     Dosage: 20 MG, 1X/DAY
     Dates: start: 20080101

REACTIONS (1)
  - OESOPHAGITIS [None]
